FAERS Safety Report 24120321 (Version 3)
Quarter: 2024Q3

REPORT INFORMATION
  Report Type: Spontaneous
  Country: CH (occurrence: CH)
  Receive Date: 20240722
  Receipt Date: 20240824
  Transmission Date: 20241017
  Serious: No
  Sender: JOHNSON AND JOHNSON
  Company Number: CH-JNJFOC-20240678494

PATIENT
  Sex: Female

DRUGS (1)
  1. SIMPONI [Suspect]
     Active Substance: GOLIMUMAB
     Indication: Spondylitis
     Dosage: STRENGTH 50.00 MG / 0.50 ML
     Route: 058

REACTIONS (3)
  - Device defective [Unknown]
  - Injury associated with device [Unknown]
  - Inappropriate schedule of product administration [Unknown]

NARRATIVE: CASE EVENT DATE: 20240624
